APPROVED DRUG PRODUCT: FLUOROURACIL
Active Ingredient: FLUOROURACIL
Strength: 1GM/20ML (50MG/ML)
Dosage Form/Route: INJECTABLE;INJECTION
Application: A040743 | Product #001 | TE Code: AP
Applicant: ACCORD HEALTHCARE INC
Approved: Apr 26, 2007 | RLD: No | RS: No | Type: RX